FAERS Safety Report 10717670 (Version 1)
Quarter: 2015Q1

REPORT INFORMATION
  Report Type: Spontaneous
  Country: LB (occurrence: LB)
  Receive Date: 20150116
  Receipt Date: 20150116
  Transmission Date: 20150721
  Serious: Yes (Death)
  Sender: FDA-Public Use
  Company Number: LB-BAYER-2015-006336

PATIENT
  Sex: Male

DRUGS (1)
  1. REGORAFENIB [Suspect]
     Active Substance: REGORAFENIB
     Indication: COLORECTAL CANCER METASTATIC
     Dosage: UNK
     Dates: start: 201408

REACTIONS (2)
  - Fatigue [None]
  - Death [Fatal]

NARRATIVE: CASE EVENT DATE: 2014
